FAERS Safety Report 15161033 (Version 3)
Quarter: 2018Q3

REPORT INFORMATION
  Report Type: Report from Study
  Country: US (occurrence: US)
  Receive Date: 20180718
  Receipt Date: 20180904
  Transmission Date: 20181010
  Serious: Yes (Death, Hospitalization, Other)
  Sender: FDA-Public Use
  Company Number: US-JAZZ-2018-US-005037

PATIENT
  Age: 41 Year
  Sex: Female

DRUGS (44)
  1. XYREM [Suspect]
     Active Substance: SODIUM OXYBATE
     Dosage: DOSE ADJUSTMENT
     Route: 048
     Dates: start: 201311, end: 201701
  2. MELOXICAM. [Concomitant]
     Active Substance: MELOXICAM
  3. ZALEPLON. [Concomitant]
     Active Substance: ZALEPLON
  4. GABAPENTIN. [Concomitant]
     Active Substance: GABAPENTIN
  5. MODAFINIL. [Concomitant]
     Active Substance: MODAFINIL
  6. DOXEPIN [Concomitant]
     Active Substance: DOXEPIN
  7. HALCION [Concomitant]
     Active Substance: TRIAZOLAM
  8. LEXAPRO [Concomitant]
     Active Substance: ESCITALOPRAM OXALATE
  9. REMERON [Concomitant]
     Active Substance: MIRTAZAPINE
  10. XYREM [Suspect]
     Active Substance: SODIUM OXYBATE
     Dosage: 3 G, BID
     Route: 048
     Dates: start: 201310, end: 201311
  11. PROPRANOLOL [Concomitant]
     Active Substance: PROPRANOLOL HYDROCHLORIDE
  12. KLOR?CON [Concomitant]
     Active Substance: POTASSIUM CHLORIDE
  13. CLONAZEPAM. [Concomitant]
     Active Substance: CLONAZEPAM
  14. CLINDAMYCIN HYDROCHLORIDE. [Concomitant]
     Active Substance: CLINDAMYCIN HYDROCHLORIDE
  15. LAMICTAL [Concomitant]
     Active Substance: LAMOTRIGINE
  16. MELATONIN [Concomitant]
     Active Substance: MELATONIN
  17. AMITRIPTYLINE HCL [Concomitant]
     Active Substance: AMITRIPTYLINE
  18. HYDROCHLOROTHIAZIDE. [Concomitant]
     Active Substance: HYDROCHLOROTHIAZIDE
  19. ACANYA [Concomitant]
     Active Substance: BENZOYL PEROXIDE\CLINDAMYCIN PHOSPHATE
  20. CEFADROXIL. [Concomitant]
     Active Substance: CEFADROXIL
  21. DULOXETINE HCL [Concomitant]
     Active Substance: DULOXETINE HYDROCHLORIDE
  22. MAGNESIUM OXIDE. [Concomitant]
     Active Substance: MAGNESIUM OXIDE
  23. RISPERDAL [Concomitant]
     Active Substance: RISPERIDONE
  24. XYREM [Suspect]
     Active Substance: SODIUM OXYBATE
     Indication: NARCOLEPSY
     Dosage: 2.25 G, BID
     Route: 048
     Dates: start: 200709, end: 200711
  25. XYREM [Suspect]
     Active Substance: SODIUM OXYBATE
     Dosage: 4.5 G, BID
     Route: 048
     Dates: start: 200910, end: 2010
  26. XYREM [Suspect]
     Active Substance: SODIUM OXYBATE
     Dosage: 4.5 G, BID
     Route: 048
     Dates: start: 201701
  27. DULOXETINE. [Suspect]
     Active Substance: DULOXETINE
     Indication: PRODUCT USED FOR UNKNOWN INDICATION
  28. IBUPROFEN. [Concomitant]
     Active Substance: IBUPROFEN
  29. DIPHENHYDRAMINE HYDROCHLORIDE. [Concomitant]
     Active Substance: DIPHENHYDRAMINE HYDROCHLORIDE
  30. ROZEREM [Concomitant]
     Active Substance: RAMELTEON
  31. TRAZODONE [Concomitant]
     Active Substance: TRAZODONE HYDROCHLORIDE
  32. XANAX [Concomitant]
     Active Substance: ALPRAZOLAM
  33. CYCLOBENZAPRINE. [Concomitant]
     Active Substance: CYCLOBENZAPRINE
  34. ALPRAZOLAM. [Concomitant]
     Active Substance: ALPRAZOLAM
  35. RETIN?A [Concomitant]
     Active Substance: TRETINOIN
  36. ONDANSETRON [Concomitant]
     Active Substance: ONDANSETRON
  37. XYREM [Suspect]
     Active Substance: SODIUM OXYBATE
     Indication: CATAPLEXY
     Dosage: DOSE ADJUSTMENT
     Route: 048
     Dates: start: 200711, end: 200910
  38. EFFEXOR [Concomitant]
     Active Substance: VENLAFAXINE HYDROCHLORIDE
  39. AMBIEN [Concomitant]
     Active Substance: ZOLPIDEM TARTRATE
  40. DIFFERIN [Concomitant]
     Active Substance: ADAPALENE
  41. ROBAXIN [Concomitant]
     Active Substance: METHOCARBAMOL
  42. RANITIDINE. [Concomitant]
     Active Substance: RANITIDINE
  43. BACLOFEN. [Concomitant]
     Active Substance: BACLOFEN
  44. SPIRONOLACTONE. [Concomitant]
     Active Substance: SPIRONOLACTONE

REACTIONS (10)
  - Depression [Fatal]
  - Panic attack [Not Recovered/Not Resolved]
  - Completed suicide [Fatal]
  - Suicide attempt [Unknown]
  - Psychotic disorder [Unknown]
  - Mental disorder [Recovering/Resolving]
  - Thinking abnormal [Not Recovered/Not Resolved]
  - Suicidal ideation [Recovered/Resolved]
  - Intentional product use issue [Unknown]
  - Insomnia [Unknown]

NARRATIVE: CASE EVENT DATE: 201802
